FAERS Safety Report 8226057-8 (Version None)
Quarter: 2012Q1

REPORT INFORMATION
  Report Type: 
  Country: None (occurrence: None)
  Receive Date: 20120319
  Receipt Date: 20120319
  Transmission Date: 20120608
  Serious: Yes (Hospitalization)
  Sender: FDA-Public Use
  Company Number: 015060

PATIENT
  Age: 78 Year
  Sex: Male

DRUGS (6)
  1. TAZIN (CARBAZOCHROME SODIUM SULFONATE) [Concomitant]
  2. CARNACULIN (PANCREAS EXTRACT) [Concomitant]
  3. LOMEFLOXACIN HYDROCHLORIDE (LOMEFLOXACIN HYDROCHLORIDE) [Concomitant]
  4. MACUGEN [Suspect]
     Indication: AGE-RELATED MACULAR DEGENERATION
     Dosage: 0.3 MG, UNK, INTRAOCULAR
     Route: 031
     Dates: start: 20081218, end: 20081218
  5. PRANOPROFEN (PRANOPROFEN) [Concomitant]
  6. BETAMETHASONE [Concomitant]

REACTIONS (1)
  - ARRHYTHMIA [None]
